FAERS Safety Report 16067763 (Version 1)
Quarter: 2019Q1

REPORT INFORMATION
  Report Type: Spontaneous
  Country: US (occurrence: US)
  Receive Date: 20190313
  Receipt Date: 20190313
  Transmission Date: 20190418
  Serious: No
  Sender: FDA-Public Use
  Company Number: US-PFIZER INC-2019093674

PATIENT
  Age: 65 Year
  Sex: Male
  Weight: 151.9 kg

DRUGS (2)
  1. LYRICA CR [Suspect]
     Active Substance: PREGABALIN
     Indication: NEUROPATHY PERIPHERAL
     Dosage: 165 MG, 1X/DAY (AFTER MEAL TIME)
     Route: 048
     Dates: start: 20190219
  2. LYRICA CR [Suspect]
     Active Substance: PREGABALIN
     Dosage: 247.5 MG, 1X/DAY (ONCE DAILY AFTER DINNER)
     Route: 048
     Dates: start: 20190228

REACTIONS (1)
  - Palpitations [Unknown]
